FAERS Safety Report 4685182-9 (Version None)
Quarter: 2005Q2

REPORT INFORMATION
  Report Type: 
  Country: None (occurrence: None)
  Receive Date: 20050603
  Receipt Date: 20050524
  Transmission Date: 20051028
  Serious: Yes (Hospitalization)
  Sender: FDA-Public Use
  Company Number: 2005015282

PATIENT
  Age: 51 Year
  Sex: Male

DRUGS (6)
  1. SULFASALAZINE [Suspect]
     Indication: ILL-DEFINED DISORDER
     Dosage: 2 DOSE FORMS (EVERY DAY), ORAL
     Route: 048
     Dates: start: 20040528, end: 20040612
  2. PREDNISONE TAB [Suspect]
     Indication: ILL-DEFINED DISORDER
     Dosage: 10 MG (EVERY DAY), ORAL
     Route: 048
     Dates: start: 20020901, end: 20040613
  3. CARBIMAZOLE (CARBIMAZOLE) [Suspect]
     Indication: ILL-DEFINED DISORDER
     Dosage: 5 MG (EVERY DAY), ORAL
     Route: 048
     Dates: start: 20020501, end: 20040615
  4. CLONAZEPAM [Suspect]
     Indication: ILL-DEFINED DISORDER
     Dosage: 0.9 MG (EVERY DAY), ORAL
     Route: 048
     Dates: start: 20040301, end: 20040613
  5. TIMOLOL MALEATE [Concomitant]
  6. CALCIUM WITH VITAMIN D (CALCIUM PHOSPHATE, CALCIUM SODIUM LACTATE, ERG [Concomitant]

REACTIONS (5)
  - DERMATITIS BULLOUS [None]
  - EXANTHEM [None]
  - PYREXIA [None]
  - RASH MORBILLIFORM [None]
  - TOXIC EPIDERMAL NECROLYSIS [None]
